FAERS Safety Report 16898962 (Version 1)
Quarter: 2019Q4

REPORT INFORMATION
  Report Type: Spontaneous
  Country: US (occurrence: US)
  Receive Date: 20191009
  Receipt Date: 20191009
  Transmission Date: 20200122
  Serious: No
  Sender: FDA-Public Use
  Company Number: US-GLENMARK PHARMACEUTICALS-2019GMK041372

PATIENT

DRUGS (6)
  1. GABAPENTIN TABLETS [Suspect]
     Active Substance: GABAPENTIN
     Indication: NERVE INJURY
     Dosage: 600 MG, BID
     Route: 048
  2. DULOXETINE. [Concomitant]
     Active Substance: DULOXETINE
     Indication: DEPRESSION
     Dosage: 60 MG, BID
     Route: 048
  3. DULOXETINE. [Concomitant]
     Active Substance: DULOXETINE
     Indication: POST-TRAUMATIC STRESS DISORDER
  4. GABAPENTIN TABLETS [Suspect]
     Active Substance: GABAPENTIN
     Dosage: 2100 MG, QD (600MG IN THE MORNING AND AGAIN IN MIDAFTERNOON, 900MG AT NIGHT)
     Route: 048
  5. NABUMETONE. [Concomitant]
     Active Substance: NABUMETONE
     Indication: OSTEOARTHRITIS
     Dosage: 500 MG, BID
     Route: 048
  6. GABAPENTIN TABLETS [Suspect]
     Active Substance: GABAPENTIN
     Indication: COMPLEX REGIONAL PAIN SYNDROME
     Dosage: 900 MG, TID
     Route: 048

REACTIONS (5)
  - Nerve injury [Unknown]
  - Complex regional pain syndrome [Unknown]
  - Drug ineffective for unapproved indication [Unknown]
  - Dizziness [Unknown]
  - Condition aggravated [Unknown]
